FAERS Safety Report 6431785-0 (Version None)
Quarter: 2009Q4

REPORT INFORMATION
  Report Type: 
  Country: None (occurrence: None)
  Receive Date: 20091104
  Receipt Date: 20091021
  Transmission Date: 20100525
  Serious: Yes (Death, Other)
  Sender: FDA-Public Use
  Company Number: CLOF-1000669

PATIENT
  Age: 74 Year
  Sex: Male
  Weight: 77 kg

DRUGS (6)
  1. EVOLTRA (CLOFARABINE) SOLUTION FOR INFUSION, MG/M2 [Suspect]
     Indication: ACUTE MYELOID LEUKAEMIA
     Dosage: SEE IMAGE
     Route: 062
     Dates: start: 20090622, end: 20090626
  2. EVOLTRA (CLOFARABINE) SOLUTION FOR INFUSION, MG/M2 [Suspect]
     Indication: ACUTE MYELOID LEUKAEMIA
     Dosage: SEE IMAGE
     Route: 062
     Dates: start: 20090727, end: 20090731
  3. DAUNORUBICIN HCL [Suspect]
     Indication: ACUTE MYELOID LEUKAEMIA
     Dosage: 100 MG, QDX5, INTRAVENOUS
     Route: 042
     Dates: start: 20090622, end: 20090626
  4. DAUNORUBICIN HCL [Suspect]
     Indication: ACUTE MYELOID LEUKAEMIA
     Dosage: 100 MG, QDX5, INTRAVENOUS
     Route: 042
     Dates: start: 20090727, end: 20090731
  5. ACICLOVIR (ACICLOVIR SODIUM) [Concomitant]
  6. EVOLTRA(CLOFARABINE) SOLUTION, [Suspect]
     Dates: start: 20090727, end: 20090731

REACTIONS (11)
  - ACUTE MYOCARDIAL INFARCTION [None]
  - BLOOD CREATININE INCREASED [None]
  - BLOOD UREA INCREASED [None]
  - CARDIOGENIC SHOCK [None]
  - CONDUCTION DISORDER [None]
  - ELECTROCARDIOGRAM PR SHORTENED [None]
  - NO THERAPEUTIC RESPONSE [None]
  - PULMONARY OEDEMA [None]
  - QRS AXIS ABNORMAL [None]
  - SINUS TACHYCARDIA [None]
  - SUPRAVENTRICULAR EXTRASYSTOLES [None]
